FAERS Safety Report 8282169-4 (Version None)
Quarter: 2012Q2

REPORT INFORMATION
  Report Type: 
  Country: None (occurrence: None)
  Receive Date: 20120410
  Receipt Date: 20120326
  Transmission Date: 20120825
  Serious: Yes (Death, Hospitalization)
  Sender: FDA-Public Use
  Company Number: DSA_56045_2012

PATIENT
  Age: 60 Year
  Sex: Male

DRUGS (1)
  1. BUPROPION HCL [Suspect]
     Indication: PRODUCT USED FOR UNKNOWN INDICATION
     Dosage: (DF)

REACTIONS (3)
  - SHOCK [None]
  - CIRCULATORY COLLAPSE [None]
  - CARDIOTOXICITY [None]
